FAERS Safety Report 6122200-5 (Version None)
Quarter: 2009Q1

REPORT INFORMATION
  Report Type: 
  Country: None (occurrence: None)
  Receive Date: 20090316
  Receipt Date: 20090308
  Transmission Date: 20090719
  Serious: Yes (Other)
  Sender: FDA-Public Use
  Company Number: 212836

PATIENT
  Age: 11 Month
  Sex: Male

DRUGS (9)
  1. CYTARABINE [Suspect]
     Indication: NON-HODGKIN'S LYMPHOMA
  2. METHOTREXATE [Suspect]
     Indication: NON-HODGKIN'S LYMPHOMA
  3. DEXAMETHASONE [Suspect]
     Indication: NON-HODGKIN'S LYMPHOMA
  4. BACTRIM [Suspect]
     Indication: ANTIFUNGAL PROPHYLAXIS
  5. IFOSFAMIDE [Suspect]
     Indication: NON-HODGKIN'S LYMPHOMA
  6. (ETOPOSIDE) [Suspect]
     Indication: NON-HODGKIN'S LYMPHOMA
  7. AMOXICILLIN AND CLAVULANATE POTASSIUM [Suspect]
     Indication: FEBRILE NEUTROPENIA
  8. AMOXICILLIN AND CLAVULANATE POTASSIUM [Suspect]
     Indication: PROPHYLAXIS
  9. FLUCONAZOLE [Suspect]
     Indication: PROPHYLAXIS

REACTIONS (2)
  - CLOSTRIDIUM DIFFICILE COLITIS [None]
  - FLATULENCE [None]
